FAERS Safety Report 4318939-4 (Version None)
Quarter: 2004Q1

REPORT INFORMATION
  Report Type: 
  Country: None (occurrence: None)
  Receive Date: 20040318
  Receipt Date: 20030723
  Transmission Date: 20041129
  Serious: Yes (Hospitalization)
  Sender: FDA-Public Use
  Company Number: DE-BRISTOL-MYERS SQUIBB COMPANY-12333241

PATIENT
  Age: 74 Year
  Sex: Male

DRUGS (12)
  1. ATAZANAVIR [Suspect]
     Indication: HIV INFECTION
     Dosage: 400 MG 30-APR-2003 TO 24-JUN-2003/INTERRUPTED 16-JUL-2003. NEVER RESTARTED.
     Route: 048
     Dates: start: 20030625, end: 20030716
  2. EPIVIR [Concomitant]
     Indication: HIV INFECTION
     Dates: start: 20030215, end: 20030716
  3. RITONAVIR [Concomitant]
     Indication: HIV INFECTION
     Dates: start: 20030625, end: 20030716
  4. VIREAD [Concomitant]
     Indication: HIV INFECTION
     Dates: start: 20020220, end: 20030716
  5. COTRIMEL FORTE [Concomitant]
  6. DELIX [Concomitant]
     Dates: start: 20030331
  7. DURAGESIC [Concomitant]
     Dates: start: 20030101
  8. ESIDRIX [Concomitant]
     Dates: start: 20021201
  9. FUROSEMIDE [Concomitant]
     Dates: start: 20021201
  10. GLYBURIDE [Concomitant]
     Dates: start: 20020219
  11. MADOPAR [Concomitant]
     Dates: start: 19960402
  12. PARKOTIL [Concomitant]
     Dates: start: 19980317

REACTIONS (12)
  - ABDOMINAL DISTENSION [None]
  - ASPARTATE AMINOTRANSFERASE INCREASED [None]
  - BLOOD ALBUMIN DECREASED [None]
  - BRADYCARDIA [None]
  - C-REACTIVE PROTEIN INCREASED [None]
  - CARDIAC MURMUR [None]
  - EXTRASYSTOLES [None]
  - GAMMA-GLUTAMYLTRANSFERASE INCREASED [None]
  - GENERAL PHYSICAL HEALTH DETERIORATION [None]
  - HAEMOGLOBIN DECREASED [None]
  - PLATELET COUNT DECREASED [None]
  - WHITE BLOOD CELL COUNT DECREASED [None]
